FAERS Safety Report 8509598-5 (Version None)
Quarter: 2012Q3

REPORT INFORMATION
  Report Type: 
  Country: None (occurrence: None)
  Receive Date: 20120713
  Receipt Date: 20120706
  Transmission Date: 20120928
  Serious: Yes (Other)
  Sender: FDA-Public Use
  Company Number: CA-JNJFOC-20120703301

PATIENT
  Sex: Male
  Weight: 81.7 kg

DRUGS (5)
  1. VITAMIN [Concomitant]
     Route: 065
  2. MINERAL [Concomitant]
     Route: 065
  3. AZATHIOPRINE [Concomitant]
     Route: 048
  4. REMICADE [Suspect]
     Indication: CROHN'S DISEASE
     Route: 042
     Dates: start: 20101116
  5. REMICADE [Suspect]
     Route: 042
     Dates: start: 20120510

REACTIONS (2)
  - CHEST PAIN [None]
  - PAIN [None]
